FAERS Safety Report 19103567 (Version 2)
Quarter: 2021Q2

REPORT INFORMATION
  Report Type: Spontaneous
  Country: JP (occurrence: JP)
  Receive Date: 20210407
  Receipt Date: 20210528
  Transmission Date: 20210717
  Serious: Yes (Other)
  Sender: FDA-Public Use
  Company Number: JP-BAYER-2021-115966

PATIENT
  Age: 82 Year
  Sex: Male
  Weight: 90.6 kg

DRUGS (13)
  1. LEUPLIN [Concomitant]
     Active Substance: LEUPROLIDE ACETATE
     Dosage: DAILY DOSE 11.25MG, EVERY 3 MONTHS
     Dates: start: 20160415
  2. NUBEQA [Suspect]
     Active Substance: DAROLUTAMIDE
     Indication: HORMONE-REFRACTORY PROSTATE CANCER
     Dosage: DAILY DOSE 300MG
     Route: 048
     Dates: start: 20210410
  3. NAFTOPIDIL OD [Concomitant]
     Active Substance: NAFTOPIDIL
     Dosage: DAILY DOSE 75MG
     Route: 048
  4. NEORAL [Concomitant]
     Active Substance: CYCLOSPORINE
     Dosage: DAILY DOSE 75MG
     Route: 048
  5. SENNOSIDES. [Concomitant]
     Active Substance: SENNOSIDES
     Dosage: DAILY DOSE 12MG
     Dates: start: 20190213
  6. CLEANAL [Concomitant]
     Active Substance: FUDOSTEINE
     Dosage: DAILY DOSE 600MG
     Route: 048
  7. RABEPRAZOLE NA [Concomitant]
     Active Substance: RABEPRAZOLE SODIUM
     Dosage: DAILY DOSE 10MG
     Route: 048
  8. FEBURIC [Concomitant]
     Active Substance: FEBUXOSTAT
     Dosage: DAILY DOSE 5MG
     Route: 048
  9. NUBEQA [Suspect]
     Active Substance: DAROLUTAMIDE
     Indication: HORMONE-REFRACTORY PROSTATE CANCER
     Dosage: DAILY DOSE 600MG
     Route: 048
     Dates: start: 20210212, end: 20210409
  10. TELMISARTAN OD [Concomitant]
     Active Substance: TELMISARTAN
     Dosage: DAILY DOSE 60MG
     Route: 048
     Dates: start: 20190301
  11. AMLODIPINE [Concomitant]
     Active Substance: AMLODIPINE BESYLATE
     Dosage: DAILY DOSE 5MG
     Dates: start: 20200717
  12. CLOPIDOGREL [Concomitant]
     Active Substance: CLOPIDOGREL BISULFATE
     Indication: PROPHYLAXIS
     Dosage: DAILY DOSE 75MG
     Route: 048
  13. TORASEMIDE OD [Concomitant]
     Active Substance: TORSEMIDE
     Dosage: DAILY DOSE 4MG
     Route: 048

REACTIONS (4)
  - Glomerular filtration rate decreased [Not Recovered/Not Resolved]
  - Off label use [None]
  - Renal impairment [Not Recovered/Not Resolved]
  - Blood creatinine increased [Not Recovered/Not Resolved]

NARRATIVE: CASE EVENT DATE: 20210212
